FAERS Safety Report 8774030 (Version 2)
Quarter: 2012Q4

REPORT INFORMATION
  Report Type: 
  Country: FR (occurrence: FR)
  Receive Date: 20120907
  Receipt Date: 20120910
  Transmission Date: 20130627
  Serious: Yes (Death)
  Sender: FDA-Public Use
  Company Number: FR-BAYER-2012-091581

PATIENT
  Age: 53 Year
  Sex: Male
  Weight: 72 kg

DRUGS (2)
  1. KOGENATE BAYER [Suspect]
     Indication: PROPHYLAXIS
     Dosage: 2000 iu, TIW
     Dates: start: 201201
  2. KOGENATE BAYER [Suspect]
     Indication: HAEMOPHILIA

REACTIONS (1)
  - Oesophageal varices haemorrhage [Fatal]
